FAERS Safety Report 9435138 (Version 2)
Quarter: 2013Q4

REPORT INFORMATION
  Report Type: Spontaneous
  Country: US (occurrence: US)
  Receive Date: 20130801
  Receipt Date: 20131015
  Transmission Date: 20140711
  Serious: Yes (Other)
  Sender: FDA-Public Use
  Company Number: US-BAYER-2013-090550

PATIENT
  Age: 23 Year
  Sex: Female

DRUGS (1)
  1. MIRENA [Suspect]
     Indication: CONTRACEPTION
     Dosage: 20 MCG/24HR, CONT
     Route: 015
     Dates: start: 201207, end: 20130717

REACTIONS (5)
  - Bacterial vaginosis [Recovered/Resolved]
  - Abasia [Recovered/Resolved]
  - Dysmenorrhoea [Recovered/Resolved]
  - Malaise [Recovered/Resolved]
  - Device expulsion [Recovered/Resolved]
